FAERS Safety Report 8998123 (Version 1)
Quarter: 2013Q1

REPORT INFORMATION
  Report Type: Spontaneous
  Country: US (occurrence: US)
  Receive Date: 20130104
  Receipt Date: 20130104
  Transmission Date: 20140127
  Serious: No
  Sender: FDA-Public Use
  Company Number: US-PFIZER INC-2013002540

PATIENT
  Age: 58 Year
  Sex: Female
  Weight: 77.1 kg

DRUGS (5)
  1. CHANTIX [Suspect]
     Indication: SMOKING CESSATION THERAPY
     Dosage: 0.5 MG (ONE WHITE PILL) DAILY
     Dates: start: 20121231
  2. ZOFRAN [Suspect]
     Indication: NAUSEA
     Dosage: 8 MG, UNK
     Dates: start: 201212
  3. ZOCOR [Concomitant]
     Dosage: 20 MG, UNK
  4. SINGULAIR [Concomitant]
     Dosage: 10 MG, UNK
  5. VASCOR [Concomitant]
     Dosage: 500 MG, UNK

REACTIONS (5)
  - Drug ineffective [Unknown]
  - Vision blurred [Unknown]
  - Somnolence [Unknown]
  - Activities of daily living impaired [Unknown]
  - Sensation of heaviness [Unknown]
